FAERS Safety Report 6058552-4 (Version None)
Quarter: 2009Q1

REPORT INFORMATION
  Report Type: 
  Country: None (occurrence: None)
  Receive Date: 20090130
  Receipt Date: 20090126
  Transmission Date: 20090719
  Serious: Yes (Other)
  Sender: FDA-Public Use
  Company Number: US-ASTRAZENECA-2009UW02427

PATIENT
  Age: 66 Year
  Sex: Female

DRUGS (7)
  1. ARIMIDEX [Suspect]
     Route: 048
     Dates: start: 20041101
  2. METOPROLOL [Concomitant]
  3. METHIMAZOLE [Concomitant]
  4. URECHOLINE [Concomitant]
  5. FLOMAX [Concomitant]
  6. ACIPHEX [Concomitant]
  7. LIPITOR [Concomitant]

REACTIONS (2)
  - BASEDOW'S DISEASE [None]
  - BREAST HYPERPLASIA [None]
